FAERS Safety Report 14143042 (Version 2)
Quarter: 2017Q4

REPORT INFORMATION
  Report Type: Report from Study
  Country: US (occurrence: BR)
  Receive Date: 20171030
  Receipt Date: 20171128
  Transmission Date: 20180321
  Serious: Yes (Other)
  Sender: FDA-Public Use
  Company Number: US-SUNOVION-2017SUN004713

PATIENT
  Sex: Female
  Weight: 68 kg

DRUGS (1)
  1. INDACATEROL AND GLYCOPYRROLATE [Suspect]
     Active Substance: GLYCOPYRROLATE\INDACATEROL MALEATE
     Indication: CHRONIC OBSTRUCTIVE PULMONARY DISEASE
     Dosage: (REGIMEN #1) 1 DF, QD
     Route: 055
     Dates: start: 201708

REACTIONS (2)
  - Pulmonary mass [Not Recovered/Not Resolved]
  - Bronchitis [Not Recovered/Not Resolved]
